FAERS Safety Report 6177621-1 (Version None)
Quarter: 2009Q2

REPORT INFORMATION
  Report Type: 
  Country: None (occurrence: None)
  Receive Date: 20090504
  Receipt Date: 20090430
  Transmission Date: 20091009
  Serious: Yes (Disabling, Other)
  Sender: FDA-Public Use
  Company Number: JP-BRISTOL-MYERS SQUIBB COMPANY-14525117

PATIENT
  Age: 31 Year
  Sex: Male

DRUGS (4)
  1. BRIPLATIN [Suspect]
     Indication: TESTIS CANCER
     Dosage: 3 COURSES ADMINISTERED.
     Route: 041
  2. VEPESID [Suspect]
     Indication: TESTIS CANCER
     Dosage: 3 COURSES ADMINISTERED.
     Route: 041
  3. BLEO [Suspect]
     Indication: TESTIS CANCER
     Dosage: 3 COURSES ADMINISTERED.
  4. DEXAMETHASONE SODIUM PHOSPHATE [Concomitant]

REACTIONS (3)
  - CEREBRAL INFARCTION [None]
  - DIARRHOEA [None]
  - NAUSEA [None]
